FAERS Safety Report 15127772 (Version 2)
Quarter: 2018Q4

REPORT INFORMATION
  Report Type: Report from Study
  Country: US (occurrence: US)
  Receive Date: 20180710
  Receipt Date: 20181031
  Transmission Date: 20190204
  Serious: No
  Sender: FDA-Public Use
  Company Number: US-SHIRE-US201824172

PATIENT
  Age: 40 Year
  Sex: Male

DRUGS (1)
  1. NATPARA (PARATHYROID HORMONE) [Suspect]
     Active Substance: PARATHYROID HORMONE
     Indication: HYPOPARATHYROIDISM
     Dosage: 50 ?G, 1X/DAY:QD
     Route: 058
     Dates: start: 20180126

REACTIONS (2)
  - Bone pain [Not Recovered/Not Resolved]
  - Arthralgia [Not Recovered/Not Resolved]

NARRATIVE: CASE EVENT DATE: 201801
